FAERS Safety Report 4308976-8 (Version None)
Quarter: 2004Q1

REPORT INFORMATION
  Report Type: 
  Country: None (occurrence: None)
  Receive Date: 20040302
  Receipt Date: 20040223
  Transmission Date: 20041129
  Serious: Yes (Hospitalization)
  Sender: FDA-Public Use
  Company Number: PHEH2004US02237

PATIENT
  Age: 6 Month
  Sex: Male

DRUGS (1)
  1. ELIDEL [Suspect]
     Indication: ECZEMA
     Dosage: UNK, QD
     Route: 061
     Dates: start: 20031201, end: 20040201

REACTIONS (2)
  - DIABETES MELLITUS INSULIN-DEPENDENT [None]
  - KETOACIDOSIS [None]
